FAERS Safety Report 7537780-2 (Version None)
Quarter: 2011Q2

REPORT INFORMATION
  Report Type: 
  Country: None (occurrence: None)
  Receive Date: 20110609
  Receipt Date: 20110531
  Transmission Date: 20111010
  Serious: Yes (Other)
  Sender: FDA-Public Use
  Company Number: US-ASTRAZENECA-2011SE33792

PATIENT
  Age: 68 Year
  Sex: Female

DRUGS (1)
  1. CRESTOR [Suspect]
     Route: 048

REACTIONS (5)
  - AORTIC VALVE DISEASE [None]
  - MUSCLE DISORDER [None]
  - CATHETERISATION CARDIAC [None]
  - BOWEL MOVEMENT IRREGULARITY [None]
  - CARDIAC DISORDER [None]
